FAERS Safety Report 11748168 (Version 1)
Quarter: 2015Q4

REPORT INFORMATION
  Report Type: Spontaneous
  Country: US (occurrence: US)
  Receive Date: 20151117
  Receipt Date: 20151117
  Transmission Date: 20160304
  Serious: No
  Sender: FDA-Public Use
  Company Number: US-AKORN, INC.-1044332

PATIENT
  Sex: Female

DRUGS (1)
  1. NAPHAZOLINE/PHENIRAMINE [Suspect]
     Active Substance: NAPHAZOLINE\PHENIRAMINE MALEATE
     Route: 047

REACTIONS (1)
  - Eye pain [Unknown]
